FAERS Safety Report 13036027 (Version 3)
Quarter: 2017Q1

REPORT INFORMATION
  Report Type: Spontaneous
  Country: JP (occurrence: JP)
  Receive Date: 20161216
  Receipt Date: 20170209
  Transmission Date: 20170428
  Serious: Yes (Hospitalization, Other)
  Sender: FDA-Public Use
  Company Number: JP-MYLANLABS-2016M1055340

PATIENT

DRUGS (7)
  1. EPIRUBICIN MYLAN [Suspect]
     Active Substance: EPIRUBICIN
     Indication: BREAST CANCER STAGE II
     Dosage: 100 MG, UNK
     Route: 041
     Dates: start: 20160913
  2. EPIRUBICIN MYLAN [Suspect]
     Active Substance: EPIRUBICIN
     Dosage: 80 MG, UNK
     Route: 041
     Dates: start: 20161101, end: 20161101
  3. ENDOXAN                            /00021101/ [Suspect]
     Active Substance: CYCLOPHOSPHAMIDE
     Indication: BREAST CANCER STAGE II
     Dosage: 700 MG, UNK
     Route: 041
     Dates: start: 20160913, end: 20160913
  4. DEXART [Concomitant]
     Active Substance: DEXAMETHASONE SODIUM PHOSPHATE
     Indication: PROPHYLAXIS OF NAUSEA AND VOMITING
     Dosage: 9.9 MG, UNK
     Route: 042
     Dates: start: 20161101, end: 20161101
  5. ALOXI [Concomitant]
     Active Substance: PALONOSETRON HYDROCHLORIDE
     Indication: PROPHYLAXIS OF NAUSEA AND VOMITING
     Dosage: 0.75 MG, UNK
     Route: 042
     Dates: start: 20161101, end: 20161101
  6. 5-FU                               /00098801/ [Suspect]
     Active Substance: FLUOROURACIL
     Indication: BREAST CANCER STAGE II
     Dosage: 700 MG, UNK
     Route: 041
     Dates: start: 20160913, end: 20160913
  7. ENDOXAN                            /00021101/ [Suspect]
     Active Substance: CYCLOPHOSPHAMIDE
     Dosage: 600 MG, UNK
     Route: 041
     Dates: start: 20161101, end: 20161101

REACTIONS (5)
  - Shock [Recovered/Resolved]
  - Phlebitis [Recovered/Resolved]
  - Hepatic function abnormal [Recovered/Resolved]
  - Renal impairment [Recovered/Resolved]
  - Cellulitis [Recovered/Resolved]

NARRATIVE: CASE EVENT DATE: 20160921
